FAERS Safety Report 9458152 (Version 3)
Quarter: 2013Q3

REPORT INFORMATION
  Report Type: Spontaneous
  Country: US (occurrence: None)
  Receive Date: 20130812
  Receipt Date: 20130916
  Transmission Date: 20140515
  Serious: Yes (Other)
  Sender: FDA-Public Use
  Company Number: MC201300396

PATIENT
  Age: 83 Year
  Sex: Male
  Weight: 69.8 kg

DRUGS (3)
  1. ANGIOMAX [Suspect]
     Indication: ANGIOPLASTY
     Dosage: 10.5 ML (0.75 MG/KG)
     Route: 040
     Dates: start: 20130729, end: 20130729
  2. ASPIRIN (ACETYLSALICYLIC ACID) [Concomitant]
  3. PLAVIX (CLOPIDOGREL BISULFATE) [Concomitant]

REACTIONS (9)
  - Peripheral artery thrombosis [None]
  - Coagulation time abnormal [None]
  - Drug ineffective for unapproved indication [None]
  - Off label use [None]
  - Procedural complication [None]
  - Peripheral artery thrombosis [None]
  - Femoral artery occlusion [None]
  - Wrong technique in drug usage process [None]
  - Product quality issue [None]
